FAERS Safety Report 4752416-1 (Version None)
Quarter: 2005Q3

REPORT INFORMATION
  Report Type: 
  Country: None (occurrence: None)
  Receive Date: 20050825
  Receipt Date: 20050811
  Transmission Date: 20060218
  Serious: Yes (Other)
  Sender: FDA-Public Use
  Company Number: US-AMGEN-US146200

PATIENT
  Sex: Female

DRUGS (2)
  1. ENBREL [Suspect]
     Indication: PSORIASIS
     Dates: start: 20041201, end: 20050124
  2. UNSPECIFIED MEDICATION [Concomitant]

REACTIONS (4)
  - BLINDNESS [None]
  - EYE PAIN [None]
  - FACIAL PAIN [None]
  - HERPES ZOSTER [None]
